FAERS Safety Report 6015982-4 (Version None)
Quarter: 2008Q4

REPORT INFORMATION
  Report Type: 
  Country: None (occurrence: None)
  Receive Date: 20081222
  Receipt Date: 20081216
  Transmission Date: 20090506
  Serious: Yes (Death, Hospitalization)
  Sender: FDA-Public Use
  Company Number: FR-BRISTOL-MYERS SQUIBB COMPANY-14445001

PATIENT
  Age: 25 Year
  Sex: Male

DRUGS (3)
  1. BLEOMYCIN SULFATE [Suspect]
     Indication: TESTICULAR GERM CELL CANCER
     Dosage: THERAPY STARTED ON 29MAY2008.
     Route: 042
     Dates: start: 20080801, end: 20080801
  2. VEPESID [Suspect]
     Indication: TESTICULAR GERM CELL CANCER
     Dosage: STARTED ON 29-MAY-2008
     Route: 042
     Dates: start: 20080801, end: 20080801
  3. CISPLATYL [Suspect]
     Indication: TESTICULAR GERM CELL CANCER
     Dosage: STARTED ON 29-MAY-2008
     Route: 042
     Dates: start: 20080801, end: 20080801

REACTIONS (4)
  - DEEP VEIN THROMBOSIS [None]
  - INTERSTITIAL LUNG DISEASE [None]
  - RESPIRATORY FAILURE [None]
  - VENA CAVA THROMBOSIS [None]
